FAERS Safety Report 20516079 (Version 3)
Quarter: 2022Q1

REPORT INFORMATION
  Report Type: Report from Study
  Country: ES (occurrence: ES)
  Receive Date: 20220225
  Receipt Date: 20220314
  Transmission Date: 20220423
  Serious: Yes (Other)
  Sender: FDA-Public Use
  Company Number: ES-JNJFOC-20220239986

PATIENT

DRUGS (9)
  1. REMICADE [Suspect]
     Active Substance: INFLIXIMAB
     Indication: Behcet^s syndrome
     Dosage: 0, 2 AND 6 WEEKS AND THEN EVERY 8 WEEKS
     Route: 042
  2. ADALIMUMAB [Concomitant]
     Active Substance: ADALIMUMAB
  3. ETANERCEPT [Concomitant]
     Active Substance: ETANERCEPT
  4. GOLIMUMAB [Concomitant]
     Active Substance: GOLIMUMAB
  5. TOCILIZUMAB [Concomitant]
     Active Substance: TOCILIZUMAB
  6. ANAKINRA [Concomitant]
     Active Substance: ANAKINRA
  7. CERTOLIZUMAB PEGOL [Concomitant]
     Active Substance: CERTOLIZUMAB PEGOL
  8. USTEKINUMAB [Concomitant]
     Active Substance: USTEKINUMAB
  9. CANAKINUMAB [Concomitant]
     Active Substance: CANAKINUMAB

REACTIONS (9)
  - Demyelination [Unknown]
  - Pulmonary tuberculosis [Unknown]
  - Dermatitis acneiform [Unknown]
  - Drug intolerance [Unknown]
  - Psoriasis [Unknown]
  - Infusion related reaction [Unknown]
  - Product use in unapproved indication [Unknown]
  - Off label use [Unknown]
  - Drug ineffective [Unknown]
